FAERS Safety Report 11529943 (Version 1)
Quarter: 2015Q3

REPORT INFORMATION
  Report Type: Spontaneous
  Country: US (occurrence: None)
  Receive Date: 20150918
  Receipt Date: 20150918
  Transmission Date: 20151125
  Serious: Yes (Hospitalization)
  Sender: FDA-Public Use
  Company Number: 2015HINLIT0759

PATIENT
  Age: 74 Year
  Sex: Female

DRUGS (1)
  1. ARIPIPRAZOLE (ARIPIPRAZOLE) UNKNOWN [Suspect]
     Active Substance: ARIPIPRAZOLE
     Indication: PRODUCT USED FOR UNKNOWN INDICATION
     Dosage: 1 DF, UNK, UNKNOWN

REACTIONS (2)
  - Stress cardiomyopathy [None]
  - Neuroleptic malignant syndrome [None]
